FAERS Safety Report 24179538 (Version 2)
Quarter: 2024Q3

REPORT INFORMATION
  Report Type: Spontaneous
  Country: US (occurrence: US)
  Receive Date: 20240806
  Receipt Date: 20240820
  Transmission Date: 20241017
  Serious: Yes (Other)
  Sender: BAYER
  Company Number: US-BAYER-2024A112172

PATIENT
  Age: 42 Year
  Sex: Female

DRUGS (1)
  1. MIRENA [Suspect]
     Active Substance: LEVONORGESTREL
     Indication: Contraception
     Dosage: 20?G/DAY
     Route: 015
     Dates: start: 202204

REACTIONS (5)
  - Device breakage [None]
  - Hormone level abnormal [None]
  - Abdominal pain lower [None]
  - Headache [None]
  - Complication of device removal [None]

NARRATIVE: CASE EVENT DATE: 20220401
